FAERS Safety Report 17388818 (Version 1)
Quarter: 2020Q1

REPORT INFORMATION
  Report Type: Report from Study
  Country: None (occurrence: CA)
  Receive Date: 20200206
  Receipt Date: 20200206
  Transmission Date: 20200409
  Serious: Yes (Hospitalization, Other)
  Sender: FDA-Public Use
  Company Number: CA-ABBVIE-20K-028-3254171-00

PATIENT
  Age: 17 Year
  Sex: Male

DRUGS (2)
  1. HUMIRA [Suspect]
     Active Substance: ADALIMUMAB
     Route: 058
     Dates: start: 2017
  2. HUMIRA [Suspect]
     Active Substance: ADALIMUMAB
     Indication: CROHN^S DISEASE
     Route: 058
     Dates: start: 20160713, end: 2019

REACTIONS (64)
  - Gastrointestinal disorder [Not Recovered/Not Resolved]
  - Ileal stenosis [Not Recovered/Not Resolved]
  - Abdominal abscess [Not Recovered/Not Resolved]
  - Ileal perforation [Not Recovered/Not Resolved]
  - Intestinal resection [Not Recovered/Not Resolved]
  - Sinus disorder [Not Recovered/Not Resolved]
  - Gastritis [Not Recovered/Not Resolved]
  - Duodenal ulcer [Not Recovered/Not Resolved]
  - Liver disorder [Not Recovered/Not Resolved]
  - Aspartate aminotransferase increased [Not Recovered/Not Resolved]
  - Clostridium difficile colitis [Not Recovered/Not Resolved]
  - Intestinal obstruction [Not Recovered/Not Resolved]
  - Intestinal anastomosis [Not Recovered/Not Resolved]
  - Intestinal dilatation [Unknown]
  - Biliary tract dilation procedure [Not Recovered/Not Resolved]
  - Hepatic lesion [Not Recovered/Not Resolved]
  - Fat tissue increased [Not Recovered/Not Resolved]
  - Laboratory test abnormal [Not Recovered/Not Resolved]
  - Alpha-1 acid glycoprotein increased [Not Recovered/Not Resolved]
  - Intestinal anastomosis [Unknown]
  - Skin induration [Not Recovered/Not Resolved]
  - Pruritus [Not Recovered/Not Resolved]
  - Stenosis [Unknown]
  - Colitis [Not Recovered/Not Resolved]
  - Mucosal inflammation [Not Recovered/Not Resolved]
  - Ileal ulcer [Not Recovered/Not Resolved]
  - Iron deficiency [Unknown]
  - Abnormal faeces [Not Recovered/Not Resolved]
  - Blood albumin decreased [Not Recovered/Not Resolved]
  - Arthralgia [Recovered/Resolved]
  - Small intestinal stenosis [Unknown]
  - C-reactive protein increased [Not Recovered/Not Resolved]
  - Abdominal wall haematoma [Not Recovered/Not Resolved]
  - Clostridium test positive [Not Recovered/Not Resolved]
  - Intestinal mucosal hypertrophy [Unknown]
  - Ulcer [Unknown]
  - Gastrointestinal hypomotility [Unknown]
  - Abdominal mass [Unknown]
  - Gastrointestinal wall thickening [Not Recovered/Not Resolved]
  - Gastrointestinal disorder [Unknown]
  - Stress [Unknown]
  - Inflammatory bowel disease [Not Recovered/Not Resolved]
  - Ileal perforation [Not Recovered/Not Resolved]
  - Red blood cell sedimentation rate increased [Not Recovered/Not Resolved]
  - Intestinal dilatation [Not Recovered/Not Resolved]
  - Musculoskeletal pain [Not Recovered/Not Resolved]
  - Procedural pain [Not Recovered/Not Resolved]
  - Abdominal abscess [Unknown]
  - Intestinal ulcer [Not Recovered/Not Resolved]
  - Renal scan abnormal [Not Recovered/Not Resolved]
  - Duodenitis [Not Recovered/Not Resolved]
  - Crohn^s disease [Not Recovered/Not Resolved]
  - Malaise [Unknown]
  - Intestinal villi atrophy [Not Recovered/Not Resolved]
  - Abdominal mass [Not Recovered/Not Resolved]
  - Intestinal fibrosis [Not Recovered/Not Resolved]
  - Pseudopolyp [Not Recovered/Not Resolved]
  - Night sweats [Not Recovered/Not Resolved]
  - Faeces discoloured [Not Recovered/Not Resolved]
  - Alanine aminotransferase abnormal [Not Recovered/Not Resolved]
  - Abdominal distension [Not Recovered/Not Resolved]
  - Ileus [Not Recovered/Not Resolved]
  - Loss of personal independence in daily activities [Unknown]
  - Gastrointestinal anastomotic leak [Not Recovered/Not Resolved]

NARRATIVE: CASE EVENT DATE: 201803
